FAERS Safety Report 5231379-9 (Version None)
Quarter: 2007Q1

REPORT INFORMATION
  Report Type: 
  Country: None (occurrence: None)
  Receive Date: 20070206
  Receipt Date: 20070130
  Transmission Date: 20070707
  Serious: Yes (Hospitalization)
  Sender: FDA-Public Use
  Company Number: JP-BRACCO-BRO-011086

PATIENT
  Age: 65 Year
  Sex: Male
  Weight: 56 kg

DRUGS (9)
  1. IOPAMIRON [Suspect]
     Indication: COMPUTERISED TOMOGRAM
     Dosage: 2 ML
     Route: 042
     Dates: start: 20070111, end: 20070111
  2. TANATRIL [Concomitant]
     Route: 050
  3. PARIET [Concomitant]
     Route: 050
  4. URSO [Concomitant]
     Route: 050
  5. LIVACT [Concomitant]
     Dosage: GRANULES
     Route: 050
  6. BERIZYM [Concomitant]
     Dosage: GRANULES
     Route: 050
  7. CAMOSTAT MESILATE [Concomitant]
     Route: 050
  8. BIOFERMIN [Concomitant]
     Route: 050
  9. ASPIRIN [Concomitant]
     Route: 050

REACTIONS (10)
  - ARTERIOSPASM CORONARY [None]
  - BLOOD PRESSURE DECREASED [None]
  - CHEST PAIN [None]
  - DEPRESSED LEVEL OF CONSCIOUSNESS [None]
  - DYSPNOEA [None]
  - ELECTROCARDIOGRAM ST SEGMENT ELEVATION [None]
  - FEELING ABNORMAL [None]
  - OXYGEN SATURATION DECREASED [None]
  - SHOCK [None]
  - VISUAL DISTURBANCE [None]
